FAERS Safety Report 5717228-0 (Version None)
Quarter: 2008Q2

REPORT INFORMATION
  Report Type: 
  Country: None (occurrence: None)
  Receive Date: 20080424
  Receipt Date: 20080422
  Transmission Date: 20081010
  Serious: Yes (Death)
  Sender: FDA-Public Use
  Company Number: IN-PFIZER INC-2008035487

PATIENT
  Sex: Male

DRUGS (11)
  1. IRINOTECAN HCL [Suspect]
     Indication: COLORECTAL CANCER METASTATIC
     Route: 042
     Dates: start: 20080311, end: 20080328
  2. FLUOROURACIL [Suspect]
     Indication: COLORECTAL CANCER METASTATIC
     Route: 042
     Dates: start: 20080311, end: 20080330
  3. LEUCOVORIN CALCIUM [Suspect]
     Indication: COLORECTAL CANCER METASTATIC
     Route: 042
     Dates: start: 20080311, end: 20080328
  4. BLINDED SU11248 (SU011248) [Suspect]
     Indication: COLORECTAL CANCER METASTATIC
     Dosage: FREQ:ONCE DAILY X 4 WKS ON, 2 WKS OFF
     Route: 048
     Dates: start: 20080311, end: 20080408
  5. CROCIN [Concomitant]
     Route: 048
     Dates: start: 20080409, end: 20080411
  6. FAROPENEM [Concomitant]
     Route: 042
     Dates: start: 20080409, end: 20080414
  7. METROGYL [Concomitant]
     Route: 042
     Dates: start: 20080409, end: 20080414
  8. FLUCONAZOLE [Concomitant]
     Route: 042
     Dates: start: 20080409, end: 20080414
  9. FILGRASTIM [Concomitant]
     Route: 058
     Dates: start: 20080409, end: 20080412
  10. POTASSIUM CHLORIDE [Concomitant]
     Route: 042
     Dates: start: 20080410, end: 20080414
  11. POVIDONE IODINE [Concomitant]
     Route: 050
     Dates: start: 20080403, end: 20080419

REACTIONS (1)
  - DEATH [None]
